FAERS Safety Report 14384574 (Version 1)
Quarter: 2018Q1

REPORT INFORMATION
  Report Type: Spontaneous
  Country: US (occurrence: US)
  Receive Date: 20180115
  Receipt Date: 20180115
  Transmission Date: 20180509
  Serious: No
  Sender: FDA-Public Use
  Company Number: US-APOTEX-2017AP008937

PATIENT
  Sex: Female

DRUGS (1)
  1. BUTORPHANOL TARTRATE. [Suspect]
     Active Substance: BUTORPHANOL TARTRATE
     Indication: MIGRAINE
     Dosage: 1 SPRAY, IN EACH NOSTRIL
     Route: 065
     Dates: start: 2011, end: 20170318

REACTIONS (4)
  - Pain [Recovered/Resolved]
  - Upper-airway cough syndrome [Recovered/Resolved]
  - Nasal discomfort [Recovered/Resolved]
  - Product taste abnormal [Recovered/Resolved]

NARRATIVE: CASE EVENT DATE: 20170318
